FAERS Safety Report 7949854-2 (Version None)
Quarter: 2011Q4

REPORT INFORMATION
  Report Type: 
  Country: None (occurrence: None)
  Receive Date: 20111130
  Receipt Date: 20111116
  Transmission Date: 20120403
  Serious: Yes (Other)
  Sender: FDA-Public Use
  Company Number: US-BAYER-201039278NA

PATIENT
  Age: 30 Year
  Sex: Female
  Weight: 68 kg

DRUGS (11)
  1. XANAX [Concomitant]
     Dosage: 0.25 MG, PRN
     Route: 048
     Dates: start: 20080703
  2. ULTRACET [Concomitant]
  3. SPIRONOLACTONE [Concomitant]
     Dosage: 25 MG, QD
     Route: 048
     Dates: start: 20080826
  4. ROBINUL [Concomitant]
     Dosage: 2 MG, BID
     Route: 048
     Dates: start: 20080805
  5. PULMICORT [Concomitant]
  6. PROMETHAZINE HCL [Concomitant]
     Dosage: 25 MG, PRN
     Route: 048
     Dates: start: 20080703
  7. YAZ [Suspect]
     Indication: CONTRACEPTION
     Dosage: UNK
     Route: 048
     Dates: start: 20070101, end: 20080101
  8. UNCODEABLE ^UNCLASSIFIABLE^ [Concomitant]
     Dosage: 25 MG, PRN
     Route: 048
  9. CARDIZEM LA [Concomitant]
     Dosage: 360 MG, QD
     Route: 048
     Dates: start: 20080909, end: 20081007
  10. ACETAMINOPHEN AND TRAMADOL HCL [Concomitant]
     Indication: PAIN
     Dosage: 325 MG, PRN
     Route: 048
     Dates: start: 20080703
  11. BENADRYL [Concomitant]
     Indication: MULTIPLE ALLERGIES
     Dosage: UNK
     Dates: start: 19970101

REACTIONS (7)
  - CHOLECYSTITIS CHRONIC [None]
  - CHEST PAIN [None]
  - NAUSEA [None]
  - DIARRHOEA [None]
  - ABDOMINAL PAIN UPPER [None]
  - GALLBLADDER DISORDER [None]
  - HYPERTENSION [None]
